FAERS Safety Report 4594895-9 (Version None)
Quarter: 2005Q1

REPORT INFORMATION
  Report Type: 
  Country: None (occurrence: None)
  Receive Date: 20050224
  Receipt Date: 20030703
  Transmission Date: 20050727
  Serious: Yes (Life-Threatening, Hospitalization)
  Sender: FDA-Public Use
  Company Number: GXKR2003US00627

PATIENT
  Age: 84 Year
  Sex: Female

DRUGS (3)
  1. AMIODARONE HCL [Suspect]
     Indication: ATRIAL FIBRILLATION
     Dosage: ORAL
     Route: 048
  2. ENALAPRIL MALEATE [Suspect]
  3. BETA METHYL DIGOXIN (NGX)(BETA METHYL DIGOXIN) [Suspect]

REACTIONS (5)
  - CARDIAC ARREST [None]
  - CARDIOACTIVE DRUG LEVEL ABOVE THERAPEUTIC [None]
  - HYPOKALAEMIA [None]
  - RENAL FAILURE [None]
  - TORSADE DE POINTES [None]
